FAERS Safety Report 15457288 (Version 1)
Quarter: 2018Q4

REPORT INFORMATION
  Report Type: Spontaneous
  Country: US (occurrence: US)
  Receive Date: 20181002
  Receipt Date: 20181002
  Transmission Date: 20190204
  Serious: Yes (Life-Threatening, Hospitalization, Other)
  Sender: FDA-Public Use
  Company Number: US-SEATTLE GENETICS-2017SGN02894

PATIENT
  Age: 63 Year
  Sex: Male

DRUGS (1)
  1. ADCETRIS [Suspect]
     Active Substance: BRENTUXIMAB VEDOTIN
     Indication: MYCOSIS FUNGOIDES
     Dosage: 180 MG, Q21D
     Route: 042
     Dates: start: 20171023, end: 20171114

REACTIONS (4)
  - Infusion related reaction [Recovered/Resolved]
  - Hypoaesthesia [Recovered/Resolved]
  - Influenza like illness [Recovered/Resolved]
  - Off label use [Unknown]

NARRATIVE: CASE EVENT DATE: 20171114
